FAERS Safety Report 13529095 (Version 1)
Quarter: 2017Q2

REPORT INFORMATION
  Report Type: Spontaneous
  Country: GB (occurrence: GB)
  Receive Date: 20170509
  Receipt Date: 20170509
  Transmission Date: 20170830
  Serious: Yes (Other)
  Sender: FDA-Public Use
  Company Number: GB-IMPAX LABORATORIES, INC-2017-IPXL-01251

PATIENT
  Age: 56 Year
  Sex: Female

DRUGS (4)
  1. OESTROGEN [Concomitant]
     Indication: HYPOPITUITARISM
     Dosage: UNK
     Route: 065
  2. DESMOPRESSIN [Concomitant]
     Active Substance: DESMOPRESSIN
     Indication: HYPOPITUITARISM
  3. THYROXINE [Concomitant]
     Active Substance: LEVOTHYROXINE
     Indication: HYPOPITUITARISM
     Dosage: UNK
     Route: 065
  4. HYDROCORTISONE. [Suspect]
     Active Substance: HYDROCORTISONE
     Indication: HYPOPITUITARISM
     Dosage: UNK
     Route: 065

REACTIONS (2)
  - Pituitary tumour benign [Unknown]
  - Pituitary-dependent Cushing^s syndrome [Unknown]
